FAERS Safety Report 14659628 (Version 1)
Quarter: 2018Q1

REPORT INFORMATION
  Report Type: Spontaneous
  Country: TW (occurrence: TW)
  Receive Date: 20180320
  Receipt Date: 20180320
  Transmission Date: 20180509
  Serious: Yes (Death, Hospitalization)
  Sender: FDA-Public Use
  Company Number: TW-ACTELION-A-CH2018-169016

PATIENT
  Age: 34 Year
  Sex: Male
  Weight: 73 kg

DRUGS (10)
  1. SPIRONOLACTONE. [Concomitant]
     Active Substance: SPIRONOLACTONE
     Indication: PULMONARY ARTERIAL HYPERTENSION
  2. WARFARIN [Concomitant]
     Active Substance: WARFARIN
     Indication: PULMONARY ARTERIAL HYPERTENSION
  3. BENZBROMARONE [Concomitant]
     Active Substance: BENZBROMARONE
     Indication: GOUTY ARTHRITIS
  4. SILDENAFIL. [Concomitant]
     Active Substance: SILDENAFIL
     Indication: PULMONARY ARTERIAL HYPERTENSION
  5. UPTRAVI [Suspect]
     Active Substance: SELEXIPAG
     Indication: PULMONARY ARTERIAL HYPERTENSION
     Dosage: 200 MCG, BID
     Route: 048
     Dates: start: 20170302, end: 20180310
  6. LASIX [Concomitant]
     Active Substance: FUROSEMIDE
     Indication: PULMONARY ARTERIAL HYPERTENSION
  7. METOLAZONE. [Concomitant]
     Active Substance: METOLAZONE
     Indication: PULMONARY ARTERIAL HYPERTENSION
  8. BENZBROMARONE [Concomitant]
     Active Substance: BENZBROMARONE
     Indication: GOUT
  9. CORDARONE [Concomitant]
     Active Substance: AMIODARONE HYDROCHLORIDE
     Indication: ATRIAL FIBRILLATION
  10. VOLIBRIS [Concomitant]
     Active Substance: AMBRISENTAN
     Indication: PULMONARY ARTERIAL HYPERTENSION

REACTIONS (22)
  - Hepatic congestion [Unknown]
  - Vomiting [Unknown]
  - Shock [Fatal]
  - C-reactive protein increased [Unknown]
  - Hyponatraemia [Unknown]
  - Drug dose omission [Unknown]
  - Cardiac failure [Unknown]
  - Dyspnoea exertional [Unknown]
  - Hyperbilirubinaemia [Unknown]
  - Cellulitis [Recovering/Resolving]
  - Acute kidney injury [Fatal]
  - Anuria [Fatal]
  - Bradycardia [Fatal]
  - Oedema peripheral [Unknown]
  - Body temperature increased [Recovering/Resolving]
  - Treatment noncompliance [Unknown]
  - Cardiac arrest [Fatal]
  - Nausea [Unknown]
  - Chest discomfort [Unknown]
  - Skin warm [Recovering/Resolving]
  - Loss of consciousness [Fatal]
  - Erythema [Recovering/Resolving]

NARRATIVE: CASE EVENT DATE: 20180305
